FAERS Safety Report 9184527 (Version 3)
Quarter: 2014Q1

REPORT INFORMATION
  Report Type: Spontaneous
  Country: US (occurrence: US)
  Receive Date: 20121101
  Receipt Date: 20140123
  Transmission Date: 20141002
  Serious: Yes (Hospitalization, Disabling, Other)
  Sender: FDA-Public Use
  Company Number: US-009507513-1210USA010187

PATIENT
  Sex: Female

DRUGS (5)
  1. FOSAMAX [Suspect]
     Indication: OSTEOPOROSIS
     Dosage: 70 MG, UNK
     Route: 048
     Dates: start: 20050817, end: 20080224
  2. FOSAMAX [Suspect]
     Indication: OSTEOPENIA
  3. ALENDRONATE SODIUM [Suspect]
     Indication: OSTEOARTHRITIS
     Dosage: 70 MG, UNK
     Route: 048
     Dates: start: 20080225, end: 20100402
  4. SYNTHROID [Concomitant]
     Indication: HYPOTHYROIDISM
     Dosage: UNK
     Dates: start: 20050817
  5. LORTAB [Concomitant]
     Indication: PAIN
     Dosage: UNK
     Dates: start: 20050806

REACTIONS (47)
  - Internal fixation of fracture [Unknown]
  - Low turnover osteopathy [Not Recovered/Not Resolved]
  - Osteoporosis [Not Recovered/Not Resolved]
  - Stress fracture [Not Recovered/Not Resolved]
  - Femur fracture [Not Recovered/Not Resolved]
  - Intestinal resection [Unknown]
  - Thyroidectomy [Unknown]
  - Convulsion [Unknown]
  - Convulsion [Unknown]
  - Femur fracture [Recovering/Resolving]
  - Vitamin D deficiency [Unknown]
  - Tooth disorder [Unknown]
  - Renal disorder [Unknown]
  - Hepatic steatosis [Unknown]
  - Umbilical hernia [Unknown]
  - Aortic arteriosclerosis [Unknown]
  - Intervertebral disc protrusion [Unknown]
  - Intervertebral disc degeneration [Unknown]
  - Spinal fracture [Unknown]
  - Depression [Not Recovered/Not Resolved]
  - Infection [Unknown]
  - Migraine [Unknown]
  - Herpes virus infection [Unknown]
  - Hypertension [Unknown]
  - Restless legs syndrome [Unknown]
  - Sinus disorder [Unknown]
  - Bacterial infection [Unknown]
  - Bacterial infection [Unknown]
  - Bacterial infection [Unknown]
  - Motion sickness [Unknown]
  - Motion sickness [Unknown]
  - Infection [Unknown]
  - Blood cholesterol increased [Unknown]
  - Pain [Not Recovered/Not Resolved]
  - Anxiety [Unknown]
  - Infection [Unknown]
  - Thrombosis [Unknown]
  - Infection [Unknown]
  - Urinary tract infection [Unknown]
  - Dizziness [Unknown]
  - Muscle spasms [Unknown]
  - Diarrhoea [Unknown]
  - Diarrhoea [Unknown]
  - Nausea [Unknown]
  - Vomiting [Unknown]
  - Vomiting [Unknown]
  - Vomiting [Unknown]
